FAERS Safety Report 9665283 (Version 1)
Quarter: 2013Q4

REPORT INFORMATION
  Report Type: Spontaneous
  Country: US (occurrence: US)
  Receive Date: 20131101
  Receipt Date: 20131101
  Transmission Date: 20140711
  Serious: No
  Sender: FDA-Public Use
  Company Number: US-PFIZER INC-2013310835

PATIENT
  Age: 70 Year
  Sex: Female

DRUGS (5)
  1. LIPITOR [Suspect]
     Dosage: UNK
  2. NITROGLYCERIN [Suspect]
     Dosage: UNK
  3. NIACIN [Suspect]
  4. NOVOCAINE [Suspect]
     Dosage: UNK
  5. ZOCOR [Suspect]
     Dosage: UNK

REACTIONS (1)
  - Drug hypersensitivity [Unknown]
